FAERS Safety Report 26146903 (Version 2)
Quarter: 2025Q4

REPORT INFORMATION
  Report Type: Spontaneous
  Country: EU (occurrence: EU)
  Receive Date: 20251211
  Receipt Date: 20251217
  Transmission Date: 20260117
  Serious: Yes (Other)
  Sender: GILEAD
  Company Number: EU-GILEAD-2025-0739965

PATIENT
  Age: 67 Year
  Sex: Male

DRUGS (3)
  1. TECARTUS [Suspect]
     Active Substance: BREXUCABTAGENE AUTOLEUCEL
     Indication: Mantle cell lymphoma recurrent
     Dosage: UNK
     Route: 065
     Dates: start: 20251107, end: 20251107
  2. FLUDARABINE PHOSPHATE [Concomitant]
     Active Substance: FLUDARABINE PHOSPHATE
     Dosage: UNK
     Dates: start: 20251103, end: 20251105
  3. CYCLOPHOSPHAMIDE ANHYDROUS [Concomitant]
     Active Substance: CYCLOPHOSPHAMIDE ANHYDROUS
     Dosage: UNK
     Dates: start: 20251103

REACTIONS (7)
  - Gastroenteritis Escherichia coli [Unknown]
  - Haematotoxicity [Unknown]
  - Cytopenia [Unknown]
  - Cardiopulmonary failure [Unknown]
  - Escherichia bacteraemia [Unknown]
  - Arrhythmia [Unknown]
  - Cytokine release syndrome [Unknown]
